FAERS Safety Report 6570030-2 (Version None)
Quarter: 2010Q1

REPORT INFORMATION
  Report Type: 
  Country: None (occurrence: None)
  Receive Date: 20100204
  Receipt Date: 20100201
  Transmission Date: 20100710
  Serious: Yes (Disabling, Other)
  Sender: FDA-Public Use
  Company Number: DE-BAYER-200936546GPV

PATIENT
  Age: 51 Year
  Sex: Male
  Weight: 74 kg

DRUGS (1)
  1. MAGNEVIST [Suspect]
     Indication: NUCLEAR MAGNETIC RESONANCE IMAGING
     Route: 042
     Dates: start: 20090914, end: 20090914

REACTIONS (4)
  - ARTHRALGIA [None]
  - CHOKING SENSATION [None]
  - INJECTION SITE MOVEMENT IMPAIRMENT [None]
  - INJECTION SITE PAIN [None]
